FAERS Safety Report 11112355 (Version 1)
Quarter: 2015Q2

REPORT INFORMATION
  Report Type: Spontaneous
  Country: US (occurrence: None)
  Receive Date: 20150513
  Receipt Date: 20150513
  Transmission Date: 20150821
  Serious: No
  Sender: FDA-Public Use
  Company Number: None

PATIENT
  Age: 84 Year
  Sex: Female
  Weight: 77.11 kg

DRUGS (3)
  1. LANSOPRAZOLE. [Concomitant]
     Active Substance: LANSOPRAZOLE
  2. ONE-A-DAY NOS [Concomitant]
     Active Substance: MINERALS\VITAMINS
  3. ELIQUIS [Suspect]
     Active Substance: APIXABAN
     Indication: PULMONARY THROMBOSIS
     Dates: start: 20150323, end: 20150402

REACTIONS (3)
  - Musculoskeletal pain [None]
  - Chest pain [None]
  - Pericardial haemorrhage [None]

NARRATIVE: CASE EVENT DATE: 20150401
